FAERS Safety Report 4696074-3 (Version None)
Quarter: 2005Q2

REPORT INFORMATION
  Report Type: 
  Country: None (occurrence: None)
  Receive Date: 20050608
  Receipt Date: 20040824
  Transmission Date: 20051028
  Serious: Yes (Other)
  Sender: FDA-Public Use
  Company Number: 378699

PATIENT

DRUGS (4)
  1. ISOTRETINOIN [Suspect]
     Indication: ACNE
     Dosage: ORAL
     Route: 048
     Dates: start: 20030215, end: 20031015
  2. FOLIC ACID [Concomitant]
  3. EUTHYROX (LEVOTHYROXINE) [Concomitant]
  4. DIANE 35 (CYPROTERONE ACETATE/ETHINYL ESTRADIOL) [Concomitant]

REACTIONS (2)
  - NO ADVERSE EFFECT [None]
  - PREGNANCY [None]
